FAERS Safety Report 7286713-5 (Version None)
Quarter: 2011Q1

REPORT INFORMATION
  Report Type: 
  Country: None (occurrence: None)
  Receive Date: 20110210
  Receipt Date: 20110204
  Transmission Date: 20110831
  Serious: Yes (Death)
  Sender: FDA-Public Use
  Company Number: US-CELGENEUS-163-21880-10120591

PATIENT
  Sex: Male

DRUGS (6)
  1. LOPRESSOR [Concomitant]
     Route: 048
     Dates: start: 20100719
  2. LEVOTHYROXINE SODIUM [Concomitant]
     Route: 065
     Dates: start: 20100719
  3. REVLIMID [Suspect]
     Route: 048
     Dates: start: 20101026, end: 20101109
  4. COMBIVENT [Concomitant]
     Route: 065
     Dates: start: 20100719
  5. ALBUTEROL [Concomitant]
     Route: 065
  6. NITROGLYCERIN [Concomitant]
     Route: 065

REACTIONS (1)
  - RESPIRATORY FAILURE [None]
